FAERS Safety Report 8848822 (Version 2)
Quarter: 2012Q4

REPORT INFORMATION
  Report Type: 
  Country: ES (occurrence: ES)
  Receive Date: 20121018
  Receipt Date: 20121029
  Transmission Date: 20130627
  Serious: Yes (Life-Threatening, Hospitalization)
  Sender: FDA-Public Use
  Company Number: ES-SANOFI-AVENTIS-2012SA073762

PATIENT
  Age: 67 Year
  Sex: Male

DRUGS (6)
  1. PLAVIX [Suspect]
     Indication: PROPHYLAXIS
     Route: 048
     Dates: start: 20111211, end: 20120213
  2. URBASON [Interacting]
     Indication: COPD
     Route: 048
     Dates: start: 20111211, end: 20120213
  3. SINTROM [Interacting]
     Indication: ATRIAL FIBRILLATION
     Route: 048
     Dates: start: 201102, end: 20120213
  4. ADIRO [Interacting]
     Indication: PROPHYLAXIS
     Route: 048
     Dates: start: 20111211, end: 20120213
  5. ATORVASTATIN [Concomitant]
     Indication: DYSLIPIDAEMIA
     Route: 048
     Dates: start: 20120110
  6. PANTOPRAZOLE [Concomitant]
     Indication: PROPHYLAXIS AGAINST GASTROINTESTINAL ULCER
     Route: 048
     Dates: start: 20111211

REACTIONS (6)
  - Gastrointestinal haemorrhage [Recovered/Resolved]
  - Drug interaction [Unknown]
  - Anaemia [Recovered/Resolved]
  - Renal failure acute [Recovered/Resolved]
  - Cardiac failure congestive [Recovered/Resolved]
  - Gastritis erosive [None]
